FAERS Safety Report 6537156-0 (Version None)
Quarter: 2010Q1

REPORT INFORMATION
  Report Type: 
  Country: None (occurrence: None)
  Receive Date: 20100114
  Receipt Date: 20100105
  Transmission Date: 20100710
  Serious: Yes (Hospitalization)
  Sender: FDA-Public Use
  Company Number: US-ABBOTT-10P-163-0617531-00

PATIENT
  Sex: Female
  Weight: 58.112 kg

DRUGS (4)
  1. HUMIRA [Suspect]
     Indication: ANKYLOSING SPONDYLITIS
     Dates: start: 20090101, end: 20090701
  2. ANTIBIOTICS [Suspect]
     Indication: VIRAL INFECTION
     Dates: start: 20090701
  3. SYNTHROID [Concomitant]
     Indication: HYPOTHYROIDISM
  4. ACTONEL [Concomitant]
     Indication: OSTEOPENIA

REACTIONS (4)
  - BLOOD COUNT ABNORMAL [None]
  - PNEUMONIA [None]
  - RASH [None]
  - VIRAL INFECTION [None]
